FAERS Safety Report 24108498 (Version 1)
Quarter: 2024Q3

REPORT INFORMATION
  Report Type: Spontaneous
  Country: US (occurrence: US)
  Receive Date: 20240718
  Receipt Date: 20240718
  Transmission Date: 20241017
  Serious: No
  Sender: TARO
  Company Number: US-TARO PHARMACEUTICALS USA INC.-2023TAR01008

PATIENT

DRUGS (1)
  1. BETAMETHASONE DIPROPIONATE\CLOTRIMAZOLE [Suspect]
     Active Substance: BETAMETHASONE DIPROPIONATE\CLOTRIMAZOLE
     Indication: Tinea infection
     Dosage: UNK, BID
     Route: 061
     Dates: start: 20230915

REACTIONS (4)
  - Pain [Not Recovered/Not Resolved]
  - Blister [Not Recovered/Not Resolved]
  - Pruritus [Not Recovered/Not Resolved]
  - Drug ineffective [Unknown]
